FAERS Safety Report 24218396 (Version 1)
Quarter: 2024Q3

REPORT INFORMATION
  Report Type: Report from Study
  Country: US (occurrence: US)
  Receive Date: 20240816
  Receipt Date: 20240816
  Transmission Date: 20241017
  Serious: Yes (Hospitalization)
  Sender: AMNEAL
  Company Number: US-AMNEAL PHARMACEUTICALS-2024-AMRX-02993

PATIENT
  Sex: Female

DRUGS (1)
  1. OPICAPONE [Suspect]
     Active Substance: OPICAPONE
     Indication: Product used for unknown indication
     Dosage: 50MG, 1 CAPSULES, BEDTIME
     Route: 048

REACTIONS (3)
  - Hospitalisation [Unknown]
  - Blood pressure increased [Unknown]
  - Blood pressure decreased [Unknown]
